FAERS Safety Report 9953842 (Version 2)
Quarter: 2014Q1

REPORT INFORMATION
  Report Type: Report from Study
  Country: JP (occurrence: JP)
  Receive Date: 20140304
  Receipt Date: 20140304
  Transmission Date: 20141002
  Serious: Yes (Death, Hospitalization)
  Sender: FDA-Public Use
  Company Number: PHHO2010JP10320

PATIENT
  Age: 31 Year
  Sex: Male
  Weight: 62 kg

DRUGS (7)
  1. EVEROLIMUS [Suspect]
     Indication: HEPATOCELLULAR CARCINOMA
     Dosage: 7.5 MG, QD
     Route: 048
     Dates: start: 20100612, end: 20100705
  2. PURSENNID [Concomitant]
     Indication: CONSTIPATION
     Route: 048
  3. AMOBAN [Concomitant]
     Indication: INSOMNIA
     Dosage: 7.5 MG, UNK
     Route: 048
  4. PARIET [Concomitant]
     Indication: PROPHYLAXIS
     Dosage: 5 MG, UNK
     Route: 048
  5. MAGLAX [Concomitant]
     Indication: CONSTIPATION
     Dosage: 990 MG, UNK
     Route: 048
     Dates: start: 20100713
  6. BARACLUDE [Concomitant]
     Indication: CHRONIC HEPATITIS
     Dosage: 0.5 MG, UNK
     Route: 048
  7. URSO [Concomitant]
     Dosage: 600 MG, UNK
     Route: 048

REACTIONS (16)
  - Hyperbilirubinaemia [Recovering/Resolving]
  - Chromaturia [Recovering/Resolving]
  - Abnormal faeces [Recovering/Resolving]
  - Malignant neoplasm progression [Fatal]
  - Haematemesis [Fatal]
  - Somnolence [Fatal]
  - Oedema peripheral [Fatal]
  - Malaise [Fatal]
  - Pain in extremity [Fatal]
  - Decreased appetite [Fatal]
  - Faeces discoloured [Fatal]
  - Ascites [Not Recovered/Not Resolved]
  - Abdominal distension [Not Recovered/Not Resolved]
  - Pyrexia [Recovering/Resolving]
  - Cough [Recovering/Resolving]
  - Constipation [Unknown]
